FAERS Safety Report 4801374-X (Version None)
Quarter: 2005Q4

REPORT INFORMATION
  Report Type: 
  Country: None (occurrence: None)
  Receive Date: 20051012
  Receipt Date: 20051006
  Transmission Date: 20060501
  Serious: Yes (Other)
  Sender: FDA-Public Use
  Company Number: 028-20785-05070427

PATIENT
  Sex: Male

DRUGS (1)
  1. THALOMID [Suspect]
     Indication: MULTIPLE MYELOMA
     Dosage: 100 MG, DAILY, ORAL
     Route: 048

REACTIONS (7)
  - BLADDER DISORDER [None]
  - DYSTONIA [None]
  - HYPOAESTHESIA [None]
  - NEUROPATHY PERIPHERAL [None]
  - RETINAL DETACHMENT [None]
  - URINARY RETENTION [None]
  - URINARY TRACT INFECTION [None]
